FAERS Safety Report 13698993 (Version 1)
Quarter: 2017Q2

REPORT INFORMATION
  Report Type: Spontaneous
  Country: US (occurrence: US)
  Receive Date: 20170628
  Receipt Date: 20170628
  Transmission Date: 20170830
  Serious: Yes (Death, Hospitalization, Other)
  Sender: FDA-Public Use
  Company Number: US-TEVA-780956USA

PATIENT
  Age: 49 Year
  Sex: Female

DRUGS (5)
  1. ARIPIPRAZOLE. [Concomitant]
     Active Substance: ARIPIPRAZOLE
     Route: 065
  2. ESCITALOPRAM [Concomitant]
     Active Substance: ESCITALOPRAM OXALATE
     Route: 065
  3. MOXIFLOXACIN. [Suspect]
     Active Substance: MOXIFLOXACIN
     Indication: LOCALISED INFECTION
     Route: 065
  4. CEFALEXIN [Suspect]
     Active Substance: CEPHALEXIN
     Indication: LOCALISED INFECTION
     Route: 065
     Dates: start: 20060522
  5. LAMOTRIGINE. [Suspect]
     Active Substance: LAMOTRIGINE
     Route: 065
     Dates: start: 20060508, end: 20060615

REACTIONS (2)
  - Drug-induced liver injury [Fatal]
  - Drug reaction with eosinophilia and systemic symptoms [Unknown]

NARRATIVE: CASE EVENT DATE: 20060604
